FAERS Safety Report 9173854 (Version 2)
Quarter: 2013Q2

REPORT INFORMATION
  Report Type: Spontaneous
  Country: IT (occurrence: IT)
  Receive Date: 20130320
  Receipt Date: 20130419
  Transmission Date: 20140414
  Serious: Yes (Hospitalization, Other)
  Sender: FDA-Public Use
  Company Number: IT-BRISTOL-MYERS SQUIBB COMPANY-17469057

PATIENT
  Age: 77 Year
  Sex: Female

DRUGS (7)
  1. COUMADIN TABS 5 MG [Suspect]
     Indication: MITRAL VALVE REPLACEMENT
     Dosage: INTERR ON 21FEB2013
     Route: 048
     Dates: start: 19920101
  2. BRUFEN [Suspect]
     Indication: OSTEOARTHRITIS
     Dosage: TAB
     Route: 048
     Dates: start: 20110101, end: 20130221
  3. LASITONE [Concomitant]
     Indication: HYPERTENSION
     Dosage: 1DF:25+37 MG TABLETS
     Route: 048
     Dates: start: 20130221
  4. BIFRIL [Concomitant]
     Indication: HYPERTENSION
     Dosage: 1DF:1 UNIT
     Route: 048
     Dates: start: 20130221
  5. CONGESCOR [Concomitant]
     Indication: HYPERTENSION
     Dosage: TAB
     Route: 048
     Dates: start: 20130221
  6. CORDARONE [Concomitant]
     Indication: ATRIAL FIBRILLATION
     Dosage: TAB
     Route: 048
     Dates: start: 20130221
  7. SIMVASTATIN [Concomitant]
     Indication: DYSLIPIDAEMIA
     Route: 048

REACTIONS (6)
  - Melaena [Recovering/Resolving]
  - Vasculitis [Recovering/Resolving]
  - Thrombocytopenia [Recovering/Resolving]
  - Anaemia [Recovering/Resolving]
  - Syncope [Recovering/Resolving]
  - Osteoarthritis [Unknown]
